FAERS Safety Report 10241845 (Version 1)
Quarter: 2014Q2

REPORT INFORMATION
  Report Type: Spontaneous
  Country: US (occurrence: US)
  Receive Date: 20140617
  Receipt Date: 20140617
  Transmission Date: 20141212
  Serious: Yes (Hospitalization)
  Sender: FDA-Public Use
  Company Number: US-GLAXOSMITHKLINE-A1076579A

PATIENT
  Age: 64 Year
  Sex: Female

DRUGS (9)
  1. LAMICTAL [Suspect]
     Indication: EPILEPSY
     Dosage: 450MG IN THE MORNING
     Route: 048
  2. LAMICTAL [Suspect]
     Indication: EPILEPSY
     Route: 048
     Dates: end: 20140605
  3. LAMOTRIGINE [Suspect]
     Indication: EPILEPSY
     Route: 065
  4. ZONEGRAN [Suspect]
     Indication: PRODUCT USED FOR UNKNOWN INDICATION
     Dosage: 500MG PER DAY
     Route: 065
  5. KEPPRA [Suspect]
     Indication: PRODUCT USED FOR UNKNOWN INDICATION
     Dosage: 3500MG PER DAY
     Route: 065
  6. DEPAKOTE [Suspect]
     Indication: PRODUCT USED FOR UNKNOWN INDICATION
     Route: 065
  7. TEGRETOL [Suspect]
     Indication: PRODUCT USED FOR UNKNOWN INDICATION
     Route: 065
  8. VALIUM [Concomitant]
     Indication: SLEEP DISORDER
  9. SEIZURE MEDICATION [Concomitant]

REACTIONS (10)
  - Convulsion [Not Recovered/Not Resolved]
  - Myoclonus [Not Recovered/Not Resolved]
  - Electroencephalogram [Unknown]
  - Dehydration [Unknown]
  - Accidental overdose [Unknown]
  - Sleep disorder [Unknown]
  - Tremor [Unknown]
  - Increased appetite [Unknown]
  - Decreased appetite [Unknown]
  - Weight decreased [Unknown]
